FAERS Safety Report 7690782-8 (Version None)
Quarter: 2011Q3

REPORT INFORMATION
  Report Type: 
  Country: None (occurrence: None)
  Receive Date: 20110818
  Receipt Date: 20110811
  Transmission Date: 20111222
  Serious: Yes (Other)
  Sender: FDA-Public Use
  Company Number: AR-AMGEN-ARGSP2011036538

PATIENT
  Age: 50 Year
  Sex: Female
  Weight: 56 kg

DRUGS (4)
  1. ENBREL [Suspect]
     Indication: RHEUMATOID ARTHRITIS
     Dosage: 50 MG, WEEKLY
     Route: 058
     Dates: start: 20071129
  2. LEFLUNOMIDE [Concomitant]
     Dosage: UNK
     Route: 048
     Dates: start: 20070101
  3. VITAMIN B12                        /00056201/ [Concomitant]
     Dosage: UNK
     Route: 048
     Dates: start: 20110101, end: 20110801
  4. BEROCCA PLUS                       /01327001/ [Concomitant]
     Dosage: UNK
     Dates: start: 20110101, end: 20110801

REACTIONS (3)
  - OSTEOPENIA [None]
  - OEDEMA PERIPHERAL [None]
  - SCOLIOSIS [None]
